FAERS Safety Report 8945950 (Version 1)
Quarter: 2012Q4

REPORT INFORMATION
  Report Type: 
  Country: US (occurrence: US)
  Receive Date: 20121204
  Receipt Date: 20121204
  Transmission Date: 20130627
  Serious: No
  Sender: FDA-Public Use
  Company Number: US-AMGEN-USASP2012062230

PATIENT
  Age: 16 Year
  Sex: Female
  Weight: 63 kg

DRUGS (4)
  1. ENBREL [Suspect]
     Indication: JUVENILE ARTHRITIS
     Dosage: 50 mg, qwk
     Route: 058
     Dates: start: 20120522
  2. METHOTREXATE [Concomitant]
     Indication: JUVENILE ARTHRITIS
     Dosage: 25 mg, qwk
     Route: 048
     Dates: start: 201201
  3. PREDNISONE [Concomitant]
     Indication: JUVENILE ARTHRITIS
     Dosage: 5 mg, qd
     Route: 048
     Dates: start: 201112
  4. FOLIC ACID [Concomitant]
     Indication: JUVENILE ARTHRITIS
     Dosage: 2 mg, qd
     Route: 048
     Dates: start: 201201

REACTIONS (5)
  - Injection site pain [Recovering/Resolving]
  - Injection site reaction [Not Recovered/Not Resolved]
  - Injection site erythema [Recovered/Resolved]
  - Injection site rash [Recovered/Resolved]
  - Injection site swelling [Recovering/Resolving]
